FAERS Safety Report 7713237-0 (Version None)
Quarter: 2011Q3

REPORT INFORMATION
  Report Type: 
  Country: None (occurrence: None)
  Receive Date: 20110826
  Receipt Date: 20110214
  Transmission Date: 20111222
  Serious: Yes (Hospitalization)
  Sender: FDA-Public Use
  Company Number: JP-SANTEN INC.-INC-11-000023

PATIENT
  Age: 61 Year
  Sex: Female

DRUGS (15)
  1. UNKNOWN DRUG (STUDY DRUG) [Suspect]
     Indication: RHEUMATOID ARTHRITIS
     Route: 065
     Dates: start: 20100215, end: 20100630
  2. MECOBALAMIN [Suspect]
     Route: 048
     Dates: start: 20080101
  3. AMLODIPINE BESYLATE [Suspect]
     Route: 048
     Dates: start: 20091024
  4. FOLIC ACID [Suspect]
     Indication: RHEUMATOID ARTHRITIS
     Route: 048
     Dates: start: 20090826, end: 20100629
  5. OMEPRAZOLE [Suspect]
     Indication: GASTRITIS PROPHYLAXIS
     Route: 048
     Dates: start: 20070629
  6. ADENOSINE TRIPHOSPHATE DISODIUM HYDRATE [Suspect]
     Route: 048
     Dates: start: 20080101
  7. PURIFIED HYALURONATE SODIUM [Suspect]
     Indication: DRY EYE
     Route: 047
     Dates: start: 20090101
  8. METHOTREXATE [Suspect]
     Indication: RHEUMATOID ARTHRITIS
     Route: 048
     Dates: start: 20091221, end: 20100628
  9. FLUOROMETHOLONE [Suspect]
     Indication: CONJUNCTIVITIS ALLERGIC
     Route: 047
     Dates: start: 20090101
  10. METHOTREXATE [Suspect]
     Route: 048
     Dates: start: 20100727
  11. DIFENIDOL HYDROCHLORIDE [Suspect]
     Route: 048
     Dates: start: 20080101
  12. LEVOFLOXACIN [Suspect]
     Indication: CONJUNCTIVITIS ALLERGIC
     Route: 047
     Dates: start: 20090101
  13. FOLIC ACID [Suspect]
     Route: 048
     Dates: start: 20100727
  14. TELMISARTAN [Suspect]
     Indication: HYPERTENSION
     Route: 048
     Dates: start: 20080620, end: 20100906
  15. ALFACALCIDOL [Suspect]
     Indication: OSTEOPOROSIS
     Route: 048
     Dates: start: 20041028

REACTIONS (2)
  - BASAL CELL CARCINOMA [None]
  - POSTOPERATIVE WOUND COMPLICATION [None]
